FAERS Safety Report 5170477-5 (Version None)
Quarter: 2006Q4

REPORT INFORMATION
  Report Type: 
  Country: None (occurrence: None)
  Receive Date: 20061204
  Receipt Date: 20061122
  Transmission Date: 20070319
  Serious: Yes (Hospitalization)
  Sender: FDA-Public Use
  Company Number: 2006143967

PATIENT
  Age: 56 Year
  Sex: Male

DRUGS (6)
  1. LYRICA [Suspect]
     Indication: NEUROPATHY
     Dosage: 300 MG (150 MG, 2 IN 1 D), ORAL
     Route: 048
     Dates: start: 20060915, end: 20060918
  2. EMCONCOR                      (BISOPROLOL) [Concomitant]
  3. PANACOD                      (CODEINE PHOSPHATE, PARACETAMOL) [Concomitant]
  4. PANTOPRAZOLE SODIUM [Concomitant]
  5. KLEXANE                  (HEPARIN-FRACTION, SODIUM SALT) [Concomitant]
  6. METRONIDAZOLE [Concomitant]

REACTIONS (6)
  - BRAIN STEM SYNDROME [None]
  - CEREBRAL INFARCTION [None]
  - CEREBROVASCULAR DISORDER [None]
  - DRUG TOXICITY [None]
  - NUCLEAR MAGNETIC RESONANCE IMAGING BRAIN ABNORMAL [None]
  - OEDEMA [None]
